FAERS Safety Report 7044418-X (Version None)
Quarter: 2010Q4

REPORT INFORMATION
  Report Type: 
  Country: None (occurrence: None)
  Receive Date: 20101014
  Receipt Date: 20101005
  Transmission Date: 20110411
  Serious: Yes (Hospitalization, Other)
  Sender: FDA-Public Use
  Company Number: FR-KINGPHARMUSA00001-K201001237

PATIENT
  Sex: Male

DRUGS (3)
  1. ALTACE [Suspect]
     Indication: HYPERTENSION
     Dosage: 2.5 MG, QD
  2. TRAMADOL [Concomitant]
     Indication: MUSCLE STRAIN
  3. ISOPTIN [Concomitant]
     Dosage: 180 MG, UNK

REACTIONS (4)
  - ANGIOEDEMA [None]
  - DEHYDRATION [None]
  - SPEECH DISORDER [None]
  - SWOLLEN TONGUE [None]
